FAERS Safety Report 10174113 (Version 4)
Quarter: 2015Q1

REPORT INFORMATION
  Report Type: Spontaneous
  Country: US (occurrence: US)
  Receive Date: 20140515
  Receipt Date: 20150121
  Transmission Date: 20150720
  Serious: Yes (Hospitalization)
  Sender: FDA-Public Use
  Company Number: US-BRISTOL-MYERS SQUIBB COMPANY-20721304

PATIENT
  Sex: Female

DRUGS (2)
  1. SPRYCEL [Suspect]
     Active Substance: DASATINIB
     Indication: CHRONIC MYELOID LEUKAEMIA
     Dosage: TAKE 1 TABLET DAILY
     Route: 048
     Dates: start: 20130725, end: 201409
  2. SPRYCEL [Suspect]
     Active Substance: DASATINIB
     Dosage: NA

REACTIONS (2)
  - Swelling [Unknown]
  - Large intestine perforation [Unknown]
